FAERS Safety Report 24408134 (Version 1)
Quarter: 2024Q4

REPORT INFORMATION
  Report Type: Spontaneous
  Country: US (occurrence: US)
  Receive Date: 20241007
  Receipt Date: 20241007
  Transmission Date: 20250114
  Serious: No
  Sender: PFIZER
  Company Number: US-PFIZER INC-202400269807

PATIENT
  Age: 63 Year
  Sex: Female
  Weight: 51.45 kg

DRUGS (3)
  1. TUKYSA [Suspect]
     Active Substance: TUCATINIB
     Indication: Colon cancer
     Dosage: TAKING TWO OF THE 150 MILLIGRAM TABLETS (300 MILLIGRAMS EVERY 12 HOUR)
     Dates: start: 20240730, end: 20240927
  2. COLACE [Concomitant]
     Active Substance: DOCUSATE SODIUM
     Indication: Constipation
     Dosage: 100 MG
  3. CYMBALTA [Concomitant]
     Active Substance: DULOXETINE HYDROCHLORIDE
     Dosage: 20 MG

REACTIONS (1)
  - Neoplasm progression [Unknown]
